FAERS Safety Report 24087704 (Version 1)
Quarter: 2024Q3

REPORT INFORMATION
  Report Type: Spontaneous
  Country: GB (occurrence: GB)
  Receive Date: 20240715
  Receipt Date: 20240715
  Transmission Date: 20241017
  Serious: Yes (Other)
  Sender: ESPERION THERAPEUTICS
  Company Number: None

PATIENT

DRUGS (1)
  1. BEMPEDOIC ACID\EZETIMIBE [Suspect]
     Active Substance: BEMPEDOIC ACID\EZETIMIBE
     Indication: Blood cholesterol increased
     Dosage: UNK
     Route: 065
     Dates: start: 20240201, end: 20240516

REACTIONS (2)
  - Haematochezia [Not Recovered/Not Resolved]
  - Mucous stools [Not Recovered/Not Resolved]

NARRATIVE: CASE EVENT DATE: 20240514
